FAERS Safety Report 25589499 (Version 4)
Quarter: 2025Q3

REPORT INFORMATION
  Report Type: Report from Study
  Country: EU (occurrence: EU)
  Receive Date: 20250722
  Receipt Date: 20250828
  Transmission Date: 20251020
  Serious: Yes (Hospitalization)
  Sender: CSL BEHRING
  Company Number: EU-BEH-2025212566

PATIENT
  Age: 76 Year
  Sex: Female
  Weight: 70 kg

DRUGS (15)
  1. PRIVIGEN [Suspect]
     Active Substance: HUMAN IMMUNOGLOBULIN G
     Indication: Secondary immunodeficiency
     Route: 042
     Dates: start: 20250618
  2. PRIVIGEN [Suspect]
     Active Substance: HUMAN IMMUNOGLOBULIN G
     Indication: Mantle cell lymphoma
     Route: 042
     Dates: start: 20250618
  3. PRIVIGEN [Suspect]
     Active Substance: HUMAN IMMUNOGLOBULIN G
     Indication: Marginal zone lymphoma
     Route: 042
     Dates: start: 20250618
  4. ATORVASTATIN [Concomitant]
     Active Substance: ATORVASTATIN
  5. CANDESARTAN [Concomitant]
     Active Substance: CANDESARTAN
  6. MONTELUKAST SODIUM [Concomitant]
     Active Substance: MONTELUKAST SODIUM
  7. EBASTINE [Concomitant]
     Active Substance: EBASTINE
  8. INDAPAMIDE [Concomitant]
     Active Substance: INDAPAMIDE
  9. ESOMEPRAZOLE [Concomitant]
     Active Substance: ESOMEPRAZOLE
  10. AMLODIPINE [Concomitant]
     Active Substance: AMLODIPINE BESYLATE
  11. NIFEDIPINE [Concomitant]
     Active Substance: NIFEDIPINE
  12. FLUTICASONE FUROATE\VILANTEROL TRIFENATATE [Concomitant]
     Active Substance: FLUTICASONE FUROATE\VILANTEROL TRIFENATATE
  13. CETIRIZINE [Concomitant]
     Active Substance: CETIRIZINE HYDROCHLORIDE
  14. PANTOPRAZOLE SODIUM [Concomitant]
     Active Substance: PANTOPRAZOLE SODIUM
  15. FLUTICASONE FUROATE\VILANTEROL TRIFENATATE [Concomitant]
     Active Substance: FLUTICASONE FUROATE\VILANTEROL TRIFENATATE

REACTIONS (5)
  - Hypersensitivity [Recovered/Resolved]
  - Cough [Recovered/Resolved]
  - Dyspnoea [Recovered/Resolved]
  - Muscle spasticity [Recovered/Resolved]
  - Infection [Recovered/Resolved]

NARRATIVE: CASE EVENT DATE: 20250618
